FAERS Safety Report 7971055-2 (Version None)
Quarter: 2011Q4

REPORT INFORMATION
  Report Type: 
  Country: None (occurrence: None)
  Receive Date: 20111212
  Receipt Date: 20111212
  Transmission Date: 20120403
  Serious: Yes (Life-Threatening, Hospitalization)
  Sender: FDA-Public Use
  Company Number: None

PATIENT
  Age: 73 Year
  Sex: Male
  Weight: 108 kg

DRUGS (15)
  1. CORDARONE [Concomitant]
  2. FUROSEMIDE [Concomitant]
  3. LUMIGAN DROPS [Concomitant]
  4. SYNTHROID [Concomitant]
  5. POTASSIUM CHLORIDE [Concomitant]
  6. JANUVIA [Concomitant]
  7. GLIMEPIRIDE [Concomitant]
  8. PRADAXA [Suspect]
     Indication: ATRIAL FIBRILLATION
     Dosage: 150 MG
     Route: 048
     Dates: start: 20100415, end: 20111024
  9. ULORIC [Concomitant]
  10. CARVEDILOL [Concomitant]
  11. ALDACTONE [Concomitant]
  12. TRAMADOL HCL [Concomitant]
  13. ACETAMINOPHEN [Concomitant]
  14. LISINOPRIL [Concomitant]
  15. LIPITOR [Concomitant]

REACTIONS (2)
  - RENAL IMPAIRMENT [None]
  - HAEMORRHAGE INTRACRANIAL [None]
